FAERS Safety Report 8156758-1 (Version None)
Quarter: 2012Q1

REPORT INFORMATION
  Report Type: 
  Country: None (occurrence: None)
  Receive Date: 20120222
  Receipt Date: 20120221
  Transmission Date: 20120608
  Serious: Yes (Life-Threatening)
  Sender: FDA-Public Use
  Company Number: JP-B.I. PHARMACEUTICALS,INC./RIDGEFIELD-2011-BP-28835NB

PATIENT
  Sex: Male
  Weight: 63.2 kg

DRUGS (14)
  1. SIGMART [Concomitant]
     Indication: CARDIAC FAILURE
     Dosage: 10 MG
     Route: 048
  2. URSO 250 [Concomitant]
     Dosage: 100 MG
     Route: 065
  3. LANTUS [Concomitant]
     Indication: DIABETES MELLITUS
     Dosage: 4 U
     Route: 065
  4. ALDACTONE [Concomitant]
     Indication: CARDIAC FAILURE
     Dosage: 50 MG
     Route: 048
  5. OMEPRAZOLE [Concomitant]
     Dosage: 20 MG
     Route: 048
  6. PRADAXA [Suspect]
     Indication: ATRIAL FIBRILLATION
     Dosage: 300 MG
     Route: 048
     Dates: start: 20110801, end: 20111219
  7. LASIX [Concomitant]
     Indication: CARDIAC FAILURE
     Route: 048
  8. METFORMIN HCL [Concomitant]
     Indication: DIABETES MELLITUS
     Dosage: 750 MG
     Route: 048
  9. KALGUT [Concomitant]
     Indication: CARDIAC FAILURE CHRONIC
     Dosage: 15 MG
     Route: 048
  10. ARGAMATE [Concomitant]
     Route: 065
  11. MIGLITOL [Concomitant]
     Indication: DIABETES MELLITUS
     Dosage: 150 MG
     Route: 048
  12. LIPITOR [Concomitant]
     Indication: DYSLIPIDAEMIA
     Dosage: 10 MG
     Route: 048
  13. PLAVIX [Suspect]
     Indication: CEREBELLAR INFARCTION
     Dosage: 75 MG
     Route: 048
     Dates: end: 20111219
  14. CARVEDILOL [Concomitant]
     Indication: CARDIAC FAILURE
     Dosage: 10 MG
     Route: 048

REACTIONS (4)
  - INTERNATIONAL NORMALISED RATIO INCREASED [None]
  - ACTIVATED PARTIAL THROMBOPLASTIN TIME PROLONGED [None]
  - PROTHROMBIN TIME PROLONGED [None]
  - RENAL FAILURE ACUTE [None]
